FAERS Safety Report 9847371 (Version 1)
Quarter: 2014Q1

REPORT INFORMATION
  Report Type: Spontaneous
  Country: US (occurrence: US)
  Receive Date: 20140127
  Receipt Date: 20140127
  Transmission Date: 20141002
  Serious: No
  Sender: FDA-Public Use
  Company Number: US-MYLANLABS-2013S1005760

PATIENT
  Age: 26 Year
  Sex: Male

DRUGS (3)
  1. FINASTERIDE TABLETS, USP 5 MG (ATLLC) (FINASTERIDE) [Suspect]
     Indication: ALOPECIA
     Route: 048
     Dates: start: 20070626, end: 20101030
  2. FINASTERIDE TABLETS, USP 5 MG (ATLLC) (FINASTERIDE) [Suspect]
     Indication: OFF LABEL USE
     Route: 048
     Dates: start: 20070626, end: 20101030
  3. PROPECIA [Suspect]
     Indication: ALOPECIA
     Route: 048
     Dates: start: 20060307, end: 20070111

REACTIONS (3)
  - Sexual dysfunction [Not Recovered/Not Resolved]
  - Gynaecomastia [Not Recovered/Not Resolved]
  - Cognitive disorder [Not Recovered/Not Resolved]
